FAERS Safety Report 20366007 (Version 1)
Quarter: 2022Q1

REPORT INFORMATION
  Report Type: Other
  Country: US (occurrence: US)
  Receive Date: 20220123
  Receipt Date: 20220123
  Transmission Date: 20220424
  Serious: Yes (Other)
  Sender: FDA-Public Use
  Company Number: US-ACORDA-ACO_168213_2021

PATIENT
  Sex: Female

DRUGS (23)
  1. AMPYRA [Suspect]
     Active Substance: DALFAMPRIDINE
     Indication: Gait disturbance
     Dosage: 10 MILLIGRAM, BID
     Route: 048
     Dates: start: 202006, end: 202101
  2. AMPYRA [Suspect]
     Active Substance: DALFAMPRIDINE
     Indication: Multiple sclerosis
  3. TERIFLUNOMIDE [Suspect]
     Active Substance: TERIFLUNOMIDE
     Indication: Multiple sclerosis
     Dosage: 14 MILLIGRAM, QD
     Route: 048
     Dates: start: 20200618
  4. TERIFLUNOMIDE [Suspect]
     Active Substance: TERIFLUNOMIDE
     Dosage: UNK
     Dates: start: 2020
  5. BACLOFEN [Suspect]
     Active Substance: BACLOFEN
     Indication: Rotator cuff repair
     Dosage: UNK
     Route: 065
     Dates: start: 2020, end: 2020
  6. BACLOFEN [Suspect]
     Active Substance: BACLOFEN
     Indication: Muscle spasticity
  7. TYLENOL [Suspect]
     Active Substance: ACETAMINOPHEN
     Indication: Product used for unknown indication
     Dosage: UNK
     Route: 065
  8. VACCINIUM SPP. [Concomitant]
     Indication: Product used for unknown indication
     Dosage: UNK
     Route: 065
  9. DOCUSATE SODIUM [Concomitant]
     Active Substance: DOCUSATE SODIUM
     Indication: Product used for unknown indication
     Dosage: UNK
     Route: 065
  10. FLUTICASONE PROPIONATE [Concomitant]
     Active Substance: FLUTICASONE PROPIONATE
     Indication: Product used for unknown indication
     Dosage: UNK
     Route: 065
  11. MECLIZINE [Concomitant]
     Active Substance: MECLIZINE HYDROCHLORIDE
     Indication: Product used for unknown indication
     Dosage: UNK
     Route: 065
  12. MELATONIN [Concomitant]
     Active Substance: MELATONIN
     Indication: Product used for unknown indication
     Dosage: UNK
     Route: 065
  13. IBUPROFEN [Concomitant]
     Active Substance: IBUPROFEN
     Indication: Product used for unknown indication
     Dosage: UNK
     Route: 065
  14. NAPROXEN [Concomitant]
     Active Substance: NAPROXEN
     Indication: Product used for unknown indication
     Dosage: UNK
     Route: 065
  15. POLYETHYLENE GLYCOL 400 [Concomitant]
     Active Substance: POLYETHYLENE GLYCOL 400
     Indication: Product used for unknown indication
     Dosage: UNK
     Route: 065
  16. PROPYLENE GLYCOL [Concomitant]
     Active Substance: PROPYLENE GLYCOL
     Indication: Product used for unknown indication
     Dosage: UNK
     Route: 065
  17. VALACYCLOVIR [Concomitant]
     Active Substance: VALACYCLOVIR HYDROCHLORIDE
     Indication: Product used for unknown indication
     Dosage: UNK
     Route: 065
  18. VITAMIN B12 [Concomitant]
     Active Substance: CYANOCOBALAMIN
     Indication: Product used for unknown indication
     Dosage: UNK
     Route: 065
  19. VITAMIN D3 [Concomitant]
     Active Substance: CHOLECALCIFEROL
     Indication: Product used for unknown indication
     Dosage: UNK
     Route: 065
  20. ZINC [Concomitant]
     Active Substance: ZINC
     Indication: Product used for unknown indication
     Dosage: UNK
     Route: 065
  21. AMLODIPINE [Concomitant]
     Active Substance: AMLODIPINE BESYLATE
     Indication: Product used for unknown indication
     Dosage: UNK
     Route: 065
  22. LOSARTAN [Concomitant]
     Active Substance: LOSARTAN
     Indication: Product used for unknown indication
     Dosage: UNK
     Route: 065
  23. VALACYCLOVIR HYDROCHLORIDE [Concomitant]
     Active Substance: VALACYCLOVIR HYDROCHLORIDE
     Indication: Product used for unknown indication
     Route: 065

REACTIONS (39)
  - Shoulder operation [Recovered/Resolved]
  - Muscular weakness [Not Recovered/Not Resolved]
  - Exostosis [Unknown]
  - Ligament rupture [Unknown]
  - Cyst [Unknown]
  - Bursitis [Unknown]
  - Arthritis [Recovered/Resolved]
  - Musculoskeletal disorder [Recovered/Resolved]
  - Growing pains [Unknown]
  - Condition aggravated [Unknown]
  - Muscle spasticity [Recovered/Resolved]
  - Blood urine present [Not Recovered/Not Resolved]
  - Abdominal discomfort [Not Recovered/Not Resolved]
  - Speech disorder [Not Recovered/Not Resolved]
  - Nasal dryness [Recovered/Resolved]
  - Skin exfoliation [Recovered/Resolved]
  - Dry skin [Recovered/Resolved]
  - Joint range of motion decreased [Recovered/Resolved]
  - Peripheral swelling [Recovered/Resolved]
  - Memory impairment [Recovered/Resolved]
  - Arthropathy [Not Recovered/Not Resolved]
  - Stomatitis [Not Recovered/Not Resolved]
  - Pain in extremity [Not Recovered/Not Resolved]
  - Abdominal pain upper [Unknown]
  - Rash [Recovered/Resolved]
  - Pruritus [Recovered/Resolved]
  - Mole excision [Recovered/Resolved]
  - Hepatic enzyme increased [Recovered/Resolved]
  - Alopecia [Recovered/Resolved]
  - Hypertension [Recovered/Resolved]
  - Neuropathy peripheral [Recovered/Resolved]
  - Hypoaesthesia [Not Recovered/Not Resolved]
  - Unevaluable event [Not Recovered/Not Resolved]
  - Headache [Recovered/Resolved]
  - Confusional state [Not Recovered/Not Resolved]
  - Nausea [Not Recovered/Not Resolved]
  - Dizziness [Not Recovered/Not Resolved]
  - Asthenia [Not Recovered/Not Resolved]
  - Multiple sclerosis relapse [Not Recovered/Not Resolved]

NARRATIVE: CASE EVENT DATE: 20200101
